FAERS Safety Report 24995176 (Version 1)
Quarter: 2025Q1

REPORT INFORMATION
  Report Type: Report from Study
  Country: CO (occurrence: CO)
  Receive Date: 20250221
  Receipt Date: 20250221
  Transmission Date: 20250408
  Serious: Yes (Other)
  Sender: UCB
  Company Number: CO-UCBSA-2024060741

PATIENT
  Age: 8 Year
  Sex: Male

DRUGS (4)
  1. LACOSAMIDE [Suspect]
     Active Substance: LACOSAMIDE
     Indication: Epilepsy
     Dosage: 12 MILLILITER, 2X/DAY (BID)
     Route: 048
     Dates: start: 20240621
  2. CLOBAZAM [Concomitant]
     Active Substance: CLOBAZAM
     Indication: Product used for unknown indication
     Dosage: 20 MILLIGRAM, 2X/DAY (BID)
  3. CLONAZEPAM [Concomitant]
     Active Substance: CLONAZEPAM
     Indication: Product used for unknown indication
     Dosage: 5 DROPS EVERY 12 HOURS
  4. VALPROIC ACID [Concomitant]
     Active Substance: VALPROIC ACID
     Indication: Product used for unknown indication
     Dosage: 5 CC EVERY 12 HOURS

REACTIONS (6)
  - Seizure [Not Recovered/Not Resolved]
  - Encephalopathy [Unknown]
  - Status epilepticus [Unknown]
  - Vomiting [Not Recovered/Not Resolved]
  - Pyrexia [Not Recovered/Not Resolved]
  - Asthenia [Not Recovered/Not Resolved]

NARRATIVE: CASE EVENT DATE: 20241108
